FAERS Safety Report 9706501 (Version 11)
Quarter: 2014Q2

REPORT INFORMATION
  Report Type: Report from Study
  Country: CA (occurrence: CA)
  Receive Date: 20131125
  Receipt Date: 20140618
  Transmission Date: 20141212
  Serious: Yes (Other)
  Sender: FDA-Public Use
  Company Number: CA-ROCHE-1269985

PATIENT
  Age: 53 Year
  Sex: Female
  Weight: 68 kg

DRUGS (8)
  1. AVASTIN [Suspect]
     Indication: LUNG ADENOCARCINOMA METASTATIC
     Route: 042
     Dates: start: 20130815, end: 20140520
  2. CARBOPLATIN [Concomitant]
     Indication: PRODUCT USED FOR UNKNOWN INDICATION
     Dosage: PRE AND POST CHEMO, NOT PRESCRIBED DAILY
     Route: 065
  3. GEMCITABINE [Concomitant]
     Indication: PRODUCT USED FOR UNKNOWN INDICATION
     Dosage: PRE AND POST CHEMO, NOT PRESCRIBED DAILY
     Route: 065
  4. ONDANSETRON [Concomitant]
  5. EMEND [Concomitant]
     Dosage: PRE AND POST CHEMO, NOT PRESCRIBED DAILY
     Route: 065
  6. STEMETIL [Concomitant]
     Dosage: PRE AND POST CHEMO, NOT PRESCRIBED DAILY
     Route: 065
  7. DECADRON [Concomitant]
     Dosage: PRE AND POST CHEMO, NOT PRESCRIBED DAILY
     Route: 065
  8. TRAMACET [Concomitant]
     Dosage: PRE AND POST CHEMO, NOT PRESCRIBED DAILY
     Route: 065

REACTIONS (24)
  - Haemoglobin decreased [Recovered/Resolved]
  - Neutrophil count decreased [Recovered/Resolved]
  - Platelet count decreased [Recovering/Resolving]
  - White blood cell count decreased [Recovered/Resolved]
  - Red blood cell count decreased [Recovered/Resolved]
  - Haematocrit decreased [Recovered/Resolved]
  - Lymphocyte count decreased [Recovered/Resolved]
  - Red cell distribution width increased [Recovering/Resolving]
  - Haemoptysis [Unknown]
  - Dyspnoea [Not Recovered/Not Resolved]
  - Blood alkaline phosphatase increased [Unknown]
  - Blood lactate dehydrogenase increased [Unknown]
  - Blood potassium decreased [Unknown]
  - Blood chloride increased [Unknown]
  - Blood urea decreased [Unknown]
  - Blood albumin decreased [Unknown]
  - Haptoglobin decreased [Unknown]
  - Nausea [Not Recovered/Not Resolved]
  - Fatigue [Not Recovered/Not Resolved]
  - Mean cell volume increased [Recovering/Resolving]
  - Abdominal pain [Unknown]
  - Gastrooesophageal reflux disease [Unknown]
  - Weight decreased [Unknown]
  - Malignant neoplasm progression [Not Recovered/Not Resolved]
